FAERS Safety Report 18115762 (Version 1)
Quarter: 2020Q3

REPORT INFORMATION
  Report Type: Spontaneous
  Country: US (occurrence: US)
  Receive Date: 20200805
  Receipt Date: 20200805
  Transmission Date: 20201103
  Serious: Yes (Life-Threatening, Hospitalization, Other)
  Sender: FDA-Public Use
  Company Number: US-EPIC PHARMA LLC-2020EPC00232

PATIENT
  Age: 43 Year
  Sex: Male

DRUGS (8)
  1. VALPROIC ACID. [Suspect]
     Active Substance: VALPROIC ACID
     Dosage: 2000 MG DAILY
     Route: 065
  2. ZONISAMIDE. [Suspect]
     Active Substance: ZONISAMIDE
     Dosage: 600 UNK
     Route: 065
  3. ZONISAMIDE. [Suspect]
     Active Substance: ZONISAMIDE
     Indication: PARTIAL SEIZURES
     Dosage: 50 MG, 1X/DAY, WITH GRADUAL TITRATION
     Route: 065
  4. VALPROIC ACID. [Suspect]
     Active Substance: VALPROIC ACID
     Dosage: 750 MG, ONCE
     Route: 042
  5. LEVETIRACETAM. [Concomitant]
     Active Substance: LEVETIRACETAM
     Indication: PARTIAL SEIZURES
     Dosage: 2000 MG, 2X/DAY
     Route: 065
  6. ZONISAMIDE. [Suspect]
     Active Substance: ZONISAMIDE
     Dosage: 500 MG, 1X/DAY
     Route: 065
  7. VALPROIC ACID. [Suspect]
     Active Substance: VALPROIC ACID
     Indication: PARTIAL SEIZURES
     Dosage: 1500 MG, 1X/DAY
     Route: 065
  8. ZONISAMIDE. [Suspect]
     Active Substance: ZONISAMIDE
     Dosage: 350 MG, 1X/DAY
     Route: 065

REACTIONS (6)
  - Memory impairment [Recovering/Resolving]
  - Drug interaction [Recovering/Resolving]
  - Hyperammonaemic encephalopathy [Recovering/Resolving]
  - Brain oedema [Recovering/Resolving]
  - Respiratory distress [Recovering/Resolving]
  - Metabolic acidosis [Unknown]
